FAERS Safety Report 9901146 (Version 1)
Quarter: 2014Q1

REPORT INFORMATION
  Report Type: Spontaneous
  Country: US (occurrence: US)
  Receive Date: 20140217
  Receipt Date: 20140217
  Transmission Date: 20141002
  Serious: No
  Sender: FDA-Public Use
  Company Number: US-PFIZER INC-2014044853

PATIENT
  Age: 53 Year
  Sex: Female
  Weight: 125.17 kg

DRUGS (4)
  1. VENLAFAXINE HCL [Suspect]
     Indication: DEPRESSION
     Dosage: 150 MG, 2X/DAY
     Dates: end: 20140210
  2. VENLAFAXINE HCL [Suspect]
     Indication: ANXIETY
  3. NORCO [Concomitant]
     Indication: INTERVERTEBRAL DISC DEGENERATION
     Dosage: 10/325 MG, 2X/DAY
     Route: 048
  4. NORCO [Concomitant]
     Indication: ARTHRITIS

REACTIONS (2)
  - Drug withdrawal syndrome [Unknown]
  - Dysphonia [Unknown]
